FAERS Safety Report 5375400-6 (Version None)
Quarter: 2007Q2

REPORT INFORMATION
  Report Type: 
  Country: None (occurrence: None)
  Receive Date: 20070629
  Receipt Date: 20070618
  Transmission Date: 20071010
  Serious: Yes (Life-Threatening, Hospitalization, Other)
  Sender: FDA-Public Use
  Company Number: JP-PFIZER INC-2007012644

PATIENT
  Sex: Male
  Weight: 53 kg

DRUGS (10)
  1. ZYVOX [Suspect]
     Indication: STAPHYLOCOCCAL SEPSIS
     Route: 042
     Dates: start: 20070209, end: 20070325
  2. DOPAMINE HCL [Concomitant]
     Indication: CARDIAC FAILURE
     Route: 042
  3. DOBUTAMINE HYDROCHLORIDE [Concomitant]
     Indication: CARDIAC FAILURE
     Route: 042
  4. HANP [Concomitant]
     Indication: CARDIAC FAILURE
     Route: 042
  5. LASIX [Concomitant]
     Indication: CARDIAC FAILURE
     Route: 042
  6. ARTIST [Concomitant]
     Indication: CARDIAC FAILURE
     Route: 048
  7. ACARDI [Concomitant]
     Indication: CARDIAC FAILURE
     Route: 048
  8. RENIVACE [Concomitant]
     Indication: CARDIAC FAILURE
     Route: 048
  9. ALDACTONE [Concomitant]
     Indication: CARDIAC FAILURE
     Route: 048
  10. LEVOFLOXACIN [Concomitant]
     Route: 048

REACTIONS (13)
  - ANAEMIA [None]
  - ANGIOPATHY [None]
  - DELIRIUM [None]
  - DISEASE RECURRENCE [None]
  - HALLUCINATIONS, MIXED [None]
  - HYPOXIA [None]
  - INCOHERENT [None]
  - PHYSICAL ASSAULT [None]
  - PLATELET COUNT DECREASED [None]
  - STAPHYLOCOCCAL SEPSIS [None]
  - STOMACH DISCOMFORT [None]
  - VERBAL ABUSE [None]
  - WHITE BLOOD CELL COUNT DECREASED [None]
